FAERS Safety Report 19202090 (Version 1)
Quarter: 2021Q2

REPORT INFORMATION
  Report Type: Spontaneous
  Country: TW (occurrence: TW)
  Receive Date: 20210430
  Receipt Date: 20210430
  Transmission Date: 20210717
  Serious: Yes (Other)
  Sender: FDA-Public Use
  Company Number: TW-AMGEN-TWNSP2021063044

PATIENT
  Age: 70 Year
  Sex: Male

DRUGS (6)
  1. MVASI [Suspect]
     Active Substance: BEVACIZUMAB-AWWB
     Indication: COLON CANCER
     Dosage: UNK
     Route: 065
     Dates: start: 202010
  2. AVASTIN [Concomitant]
     Active Substance: BEVACIZUMAB
  3. LONSURF [Concomitant]
     Active Substance: TIPIRACIL HYDROCHLORIDE\TRIFLURIDINE
     Dosage: UNK
     Dates: start: 202010
  4. STIVARGA [Concomitant]
     Active Substance: REGORAFENIB
     Dosage: UNK
     Dates: start: 202008
  5. FOLFIRI [Concomitant]
     Active Substance: FLUOROURACIL\IRINOTECAN\LEUCOVORIN
     Dosage: UNK
     Dates: start: 201802
  6. FOLFOX 6 [Concomitant]
     Active Substance: FLUOROURACIL\LEUCOVORIN CALCIUM\OXALIPLATIN
     Dosage: UNK
     Dates: start: 201912

REACTIONS (3)
  - Neuropathy peripheral [Unknown]
  - Disease progression [Unknown]
  - Anaemia [Unknown]
